FAERS Safety Report 22090486 (Version 2)
Quarter: 2023Q2

REPORT INFORMATION
  Report Type: Spontaneous
  Country: FR (occurrence: FR)
  Receive Date: 20230313
  Receipt Date: 20230406
  Transmission Date: 20230721
  Serious: Yes (Hospitalization)
  Sender: FDA-Public Use
  Company Number: None

PATIENT
  Age: 11 Year
  Sex: Male
  Weight: 32 kg

DRUGS (5)
  1. ELEXACAFTOR\IVACAFTOR\TEZACAFTOR [Suspect]
     Active Substance: ELEXACAFTOR\IVACAFTOR\TEZACAFTOR
     Indication: Cystic fibrosis
     Dosage: 2 TABS IN AM AND 1 TAB IN PM (75 MG IVA/50 MG TEZA/100 MG ELEXA)
     Route: 048
     Dates: start: 20230201, end: 20230221
  2. URSODIOL [Concomitant]
     Active Substance: URSODIOL
  3. ZITHROMAX [Concomitant]
     Active Substance: AZITHROMYCIN DIHYDRATE
  4. CREON [Concomitant]
     Active Substance: PANCRELIPASE AMYLASE\PANCRELIPASE LIPASE\PANCRELIPASE PROTEASE
  5. POLYETHYLENE GLYCOL 4000 [Concomitant]
     Active Substance: POLYETHYLENE GLYCOL 4000

REACTIONS (6)
  - Asthenia [Recovered/Resolved]
  - Retrograde amnesia [Recovered/Resolved]
  - Vertigo [Recovered/Resolved]
  - Hypersomnia [Recovered/Resolved]
  - Disorientation [Recovering/Resolving]
  - Somnolence [Recovering/Resolving]

NARRATIVE: CASE EVENT DATE: 20230213
